FAERS Safety Report 14419266 (Version 1)
Quarter: 2018Q1

REPORT INFORMATION
  Report Type: Spontaneous
  Country: US (occurrence: US)
  Receive Date: 20180120
  Receipt Date: 20180120
  Transmission Date: 20180509
  Serious: No
  Sender: FDA-Public Use
  Company Number: None

PATIENT
  Sex: Female
  Weight: 67.5 kg

DRUGS (4)
  1. CHOLESTEROL MEDS [Concomitant]
  2. BIRTH CONTROL [Suspect]
     Active Substance: UNSPECIFIED INGREDIENT
  3. FLONASE [Concomitant]
     Active Substance: FLUTICASONE PROPIONATE
  4. CHERATUSSIN AC [Suspect]
     Active Substance: CODEINE PHOSPHATE\GUAIFENESIN
     Indication: PNEUMONIA
     Dosage: QUANTITY:5 TEASPOON(S);?
     Route: 048
     Dates: start: 20180110, end: 20180120

REACTIONS (3)
  - Loss of consciousness [None]
  - Accidental overdose [None]
  - Product label confusion [None]

NARRATIVE: CASE EVENT DATE: 20180110
